FAERS Safety Report 11839869 (Version 2)
Quarter: 2016Q1

REPORT INFORMATION
  Report Type: Spontaneous
  Country: NL (occurrence: NL)
  Receive Date: 20151216
  Receipt Date: 20160205
  Transmission Date: 20160525
  Serious: Yes (Other)
  Sender: FDA-Public Use
  Company Number: NL-AUROBINDO-AUR-APL-2015-11412

PATIENT
  Age: 52 Year
  Sex: Male

DRUGS (6)
  1. METRONIDAZOLE ACTAVIS 500MG FILM-COATED TABLET [Interacting]
     Active Substance: METRONIDAZOLE
     Indication: DENTAL CARE
     Dosage: 500 MG, 3 TIMES A DAY
     Route: 048
     Dates: start: 20150803, end: 20150805
  2. ALLOPURINOL TABLETS [Interacting]
     Active Substance: ALLOPURINOL
     Dosage: 200 MG, ONCE A DAY
     Route: 048
     Dates: start: 20150127, end: 20150807
  3. INDOMETACIN [Concomitant]
     Active Substance: INDOMETHACIN
     Indication: PRODUCT USED FOR UNKNOWN INDICATION
     Dosage: 1 DF, UNK
     Route: 065
  4. AMOXICILLIN DISPERSIBLE TABLET [Suspect]
     Active Substance: AMOXICILLIN
     Indication: DENTAL CARE
     Dosage: 3 DF, ONCE A DAY
     Route: 048
     Dates: start: 20150803, end: 20150804
  5. ALLOPURINOL TABLETS [Interacting]
     Active Substance: ALLOPURINOL
     Indication: GOUT
     Dosage: 100 MG, ONCE A DAY
     Route: 048
     Dates: start: 20080101
  6. DICLOFENAC [Concomitant]
     Active Substance: DICLOFENAC
     Indication: PRODUCT USED FOR UNKNOWN INDICATION
     Dosage: 1 DF, UNK
     Route: 065

REACTIONS (2)
  - Drug interaction [Unknown]
  - Toxic skin eruption [Recovering/Resolving]

NARRATIVE: CASE EVENT DATE: 20150803
